FAERS Safety Report 6181772-5 (Version None)
Quarter: 2009Q2

REPORT INFORMATION
  Report Type: 
  Country: None (occurrence: None)
  Receive Date: 20090506
  Receipt Date: 20090422
  Transmission Date: 20091009
  Serious: No
  Sender: FDA-Public Use
  Company Number: GB-ROCHE-575773

PATIENT
  Sex: Female

DRUGS (1)
  1. ROACCUTANE [Suspect]
     Indication: ACNE
     Dosage: THREE TABLETS A DAY
     Route: 048
     Dates: start: 20071201

REACTIONS (2)
  - NO ADVERSE EVENT [None]
  - PREGNANCY [None]
